FAERS Safety Report 5054780-5 (Version None)
Quarter: 2006Q2

REPORT INFORMATION
  Report Type: 
  Country: None (occurrence: None)
  Receive Date: 20060614
  Receipt Date: 20060327
  Transmission Date: 20061013
  Serious: No
  Sender: FDA-Public Use
  Company Number: US200603006598

PATIENT
  Age: 62 Year
  Sex: Male

DRUGS (4)
  1. CIALIS [Suspect]
     Indication: ERECTILE DYSFUNCTION
     Dosage: 20 MG
     Dates: start: 20060326
  2. OXYCONTIN [Concomitant]
  3. REMERON [Concomitant]
  4. PREGABALIN (PREGABALIN) [Concomitant]

REACTIONS (1)
  - DRUG INEFFECTIVE [None]
